FAERS Safety Report 11865616 (Version 1)
Quarter: 2015Q4

REPORT INFORMATION
  Report Type: Not Available
  Country: DE (occurrence: AU)
  Receive Date: 20151223
  Receipt Date: 20151223
  Transmission Date: 20160305
  Serious: Yes (Other)
  Sender: FDA-Public Use
  Company Number: DE-ANIPHARMA-2015-AU-000001

PATIENT
  Age: 28 Year
  Sex: Male

DRUGS (4)
  1. FLUVOXAMINE MALEATE 50 MG TABLETS [Suspect]
     Active Substance: FLUVOXAMINE MALEATE
     Dosage: 50 MG NIGHTLY
     Route: 065
  2. ATROPINE. [Concomitant]
     Active Substance: ATROPINE
     Dosage: UNK
     Route: 065
  3. CLOZAPINE. [Suspect]
     Active Substance: CLOZAPINE
     Dosage: 250 MG NIGHTLY
     Route: 048
  4. PANTOPROZOLE [Concomitant]
     Dosage: UNK
     Route: 065

REACTIONS (3)
  - Cardiomyopathy [Unknown]
  - Left ventricular dysfunction [Unknown]
  - Mitral valve incompetence [Unknown]

NARRATIVE: CASE EVENT DATE: 20141020
